FAERS Safety Report 9323570 (Version 1)
Quarter: 2013Q2

REPORT INFORMATION
  Report Type: Spontaneous
  Country: US (occurrence: US)
  Receive Date: 20130603
  Receipt Date: 20130603
  Transmission Date: 20140414
  Serious: No
  Sender: FDA-Public Use
  Company Number: US-BAYER-2013-066892

PATIENT
  Sex: Male

DRUGS (1)
  1. NEXAVAR [Suspect]

REACTIONS (3)
  - Musculoskeletal chest pain [None]
  - Asthenia [None]
  - Chest discomfort [None]
